FAERS Safety Report 17993831 (Version 3)
Quarter: 2021Q3

REPORT INFORMATION
  Report Type: Spontaneous
  Country: US (occurrence: US)
  Receive Date: 20200708
  Receipt Date: 20210930
  Transmission Date: 20211014
  Serious: Yes (Other)
  Sender: FDA-Public Use
  Company Number: US-SA-2020SA173405

PATIENT

DRUGS (3)
  1. ZANTAC [Suspect]
     Active Substance: RANITIDINE HYDROCHLORIDE
     Dosage: 150 MG, BID
     Dates: start: 2010
  2. ZANTAC [Suspect]
     Active Substance: RANITIDINE HYDROCHLORIDE
     Dosage: 150 MG, BID
     Dates: start: 2015, end: 201901
  3. RANITIDINE HYDROCHLORIDE. [Suspect]
     Active Substance: RANITIDINE HYDROCHLORIDE
     Dosage: UNK
     Dates: start: 2019, end: 2020

REACTIONS (10)
  - Hepatic cancer [Unknown]
  - Injury [Unknown]
  - Renal cancer [Unknown]
  - Metastases to lung [Unknown]
  - Carcinogenicity [Unknown]
  - Anxiety [Unknown]
  - Metastases to liver [Unknown]
  - Lung neoplasm malignant [Unknown]
  - Metastases to bladder [Unknown]
  - Bladder cancer [Unknown]

NARRATIVE: CASE EVENT DATE: 2019
